FAERS Safety Report 9444497 (Version 1)
Quarter: 2013Q3

REPORT INFORMATION
  Report Type: Spontaneous
  Country: US (occurrence: None)
  Receive Date: 20130806
  Receipt Date: 20130806
  Transmission Date: 20140515
  Serious: Yes (Other)
  Sender: FDA-Public Use
  Company Number: None

PATIENT
  Age: 48 Year
  Sex: Female
  Weight: 59.88 kg

DRUGS (1)
  1. KARIVA 0.15 MG/ 0.02 MG AND 0.01 MG [Suspect]
     Indication: ENDOMETRIOSIS
     Dosage: 1 TABLET DAILY ORAL
     Route: 048
     Dates: start: 20130704, end: 20130801

REACTIONS (1)
  - Deep vein thrombosis [None]
